FAERS Safety Report 15343815 (Version 1)
Quarter: 2018Q3

REPORT INFORMATION
  Report Type: Spontaneous
  Country: US (occurrence: US)
  Receive Date: 20180903
  Receipt Date: 20180903
  Transmission Date: 20181010
  Serious: No
  Sender: FDA-Public Use
  Company Number: US-BAUSCH-BL-2018-012244

PATIENT
  Sex: Male
  Weight: 71.4 kg

DRUGS (4)
  1. LEVOTHYROXINE. [Concomitant]
     Active Substance: LEVOTHYROXINE
     Indication: PRODUCT USED FOR UNKNOWN INDICATION
     Route: 065
  2. TARGRETIN [Suspect]
     Active Substance: BEXAROTENE
     Indication: MYCOSIS FUNGOIDES
     Dosage: 1?2 PILLS
     Route: 048
     Dates: start: 2013
  3. TARGRETIN [Suspect]
     Active Substance: BEXAROTENE
     Route: 048
     Dates: end: 201806
  4. TARGRETIN [Suspect]
     Active Substance: BEXAROTENE
     Dosage: VARIOUS DOSES THAT WENT UP TO 4 PILLS A DAY (UNKNOWN)
     Route: 048

REACTIONS (4)
  - Blood triglycerides increased [Recovering/Resolving]
  - Low density lipoprotein increased [Recovering/Resolving]
  - High density lipoprotein decreased [Recovering/Resolving]
  - White blood cell count decreased [Unknown]
